FAERS Safety Report 17531330 (Version 1)
Quarter: 2020Q1

REPORT INFORMATION
  Report Type: Spontaneous
  Country: US (occurrence: US)
  Receive Date: 20200312
  Receipt Date: 20200312
  Transmission Date: 20200409
  Serious: No
  Sender: FDA-Public Use
  Company Number: US-TEVA-2020-US-1196418

PATIENT
  Sex: Male
  Weight: 87.09 kg

DRUGS (1)
  1. SILDENAFIL TEVA [Suspect]
     Active Substance: SILDENAFIL
     Indication: ERECTILE DYSFUNCTION
     Dosage: 100MG ONE TABLET BY MOUTH, MAY CUT IN HALF, WEEKLY AS NEEDED 30-60 MINUTES BEFORE SEXUAL INTERCOURSE
     Route: 048

REACTIONS (1)
  - Drug ineffective [Unknown]
